FAERS Safety Report 23195562 (Version 2)
Quarter: 2023Q4

REPORT INFORMATION
  Report Type: Spontaneous
  Country: US (occurrence: US)
  Receive Date: 20231117
  Receipt Date: 20231215
  Transmission Date: 20240109
  Serious: Yes (Other)
  Sender: FDA-Public Use
  Company Number: US-SA-SAC20231116000109

PATIENT
  Age: 62 Year
  Sex: Female

DRUGS (14)
  1. DUPIXENT [Suspect]
     Active Substance: DUPILUMAB
     Indication: Asthma
     Dosage: 300 MG, QOW
     Route: 058
  2. HYDROCHLOROTHIAZIDE [Concomitant]
     Active Substance: HYDROCHLOROTHIAZIDE
  3. LEVOTHYROXINE [Concomitant]
     Active Substance: LEVOTHYROXINE
  4. ALBUTEROL [Concomitant]
     Active Substance: ALBUTEROL
  5. AMBIEN [Concomitant]
     Active Substance: ZOLPIDEM TARTRATE
  6. CALCITRIOL [Concomitant]
     Active Substance: CALCITRIOL
  7. FLONASE ALLERGY RELIEF [Concomitant]
     Active Substance: FLUTICASONE PROPIONATE
  8. LORATADINE [Concomitant]
     Active Substance: LORATADINE
  9. MONTELUKAST [Concomitant]
     Active Substance: MONTELUKAST SODIUM
  10. PANTOPRAZOLE [Concomitant]
     Active Substance: PANTOPRAZOLE
  11. ROSUVASTATIN [Concomitant]
     Active Substance: ROSUVASTATIN
  12. TRELEGY ELLIPTA [Concomitant]
     Active Substance: FLUTICASONE FUROATE\UMECLIDINIUM BROMIDE\VILANTEROL TRIFENATATE
  13. VALSARTAN [Concomitant]
     Active Substance: VALSARTAN
  14. ALBUTEROL SULFATE [Concomitant]
     Active Substance: ALBUTEROL SULFATE

REACTIONS (19)
  - COVID-19 pneumonia [Unknown]
  - Dyspnoea [Unknown]
  - Influenza [Unknown]
  - Chest discomfort [Unknown]
  - Depression [Unknown]
  - Memory impairment [Unknown]
  - Decreased appetite [Unknown]
  - Fatigue [Unknown]
  - Middle insomnia [Unknown]
  - Limb discomfort [Unknown]
  - Sinus pain [Unknown]
  - Sinus congestion [Unknown]
  - Fluid retention [Unknown]
  - Blood potassium decreased [Unknown]
  - Back pain [Unknown]
  - Pain in extremity [Not Recovered/Not Resolved]
  - Injection site pain [Unknown]
  - Arthralgia [Not Recovered/Not Resolved]
  - Dry eye [Not Recovered/Not Resolved]

NARRATIVE: CASE EVENT DATE: 20230101
